FAERS Safety Report 17549141 (Version 1)
Quarter: 2020Q1

REPORT INFORMATION
  Report Type: Spontaneous
  Country: NL (occurrence: NL)
  Receive Date: 20200317
  Receipt Date: 20200317
  Transmission Date: 20200409
  Serious: Yes (Death, Life-Threatening, Other)
  Sender: FDA-Public Use
  Company Number: NL-ACCORD-176157

PATIENT
  Age: 23 Year
  Sex: Male
  Weight: 65 kg

DRUGS (3)
  1. LORAZEPAM. [Concomitant]
     Active Substance: LORAZEPAM
     Dosage: STRENGTH-1 MG
  2. OLANZAPINE. [Suspect]
     Active Substance: OLANZAPINE
     Indication: PSYCHOTIC DISORDER
     Dosage: 1 DD 1.5 PIECES
     Dates: start: 20191115, end: 20200103
  3. CLOZAPINE. [Suspect]
     Active Substance: CLOZAPINE
     Indication: PSYCHOTIC DISORDER
     Dosage: 2DD1 (CONSTRUCTION SCHEDULE)
     Dates: start: 20191211, end: 20200102

REACTIONS (2)
  - Faecaloma [Fatal]
  - Megacolon [Fatal]

NARRATIVE: CASE EVENT DATE: 20200102
